FAERS Safety Report 8485663-6 (Version None)
Quarter: 2012Q3

REPORT INFORMATION
  Report Type: 
  Country: None (occurrence: None)
  Receive Date: 20120703
  Receipt Date: 20120621
  Transmission Date: 20120928
  Serious: Yes (Death)
  Sender: FDA-Public Use
  Company Number: US-JNJFOC-20120613535

PATIENT

DRUGS (16)
  1. ITRACONAZOLE [Suspect]
     Indication: HISTOPLASMOSIS
     Dosage: FOR A MEDIAN TOTAL DURATION OF 18 MONTHS
     Route: 065
  2. MYCOPHENOLATE MOFETIL [Suspect]
     Indication: BLASTOMYCOSIS
     Route: 065
  3. CYCLOSPORINE [Suspect]
     Indication: BLASTOMYCOSIS
     Route: 065
  4. CORTICOSTEROIDS [Suspect]
     Indication: BLASTOMYCOSIS
     Route: 065
  5. CYCLOSPORINE [Suspect]
     Indication: HISTOPLASMOSIS
     Route: 065
  6. TACROLIMUS [Suspect]
     Indication: HISTOPLASMOSIS
     Route: 065
  7. AMPHOTERICIN B [Suspect]
     Indication: BLASTOMYCOSIS
     Route: 065
  8. AMPHOTERICIN B [Suspect]
     Indication: HISTOPLASMOSIS
     Route: 065
  9. TACROLIMUS [Suspect]
     Indication: BLASTOMYCOSIS
     Route: 065
  10. MYCOPHENOLATE MOFETIL [Suspect]
     Indication: HISTOPLASMOSIS
     Route: 065
  11. CORTICOSTEROIDS [Suspect]
     Indication: HISTOPLASMOSIS
     Route: 065
  12. SIROLIMUS [Suspect]
     Indication: BLASTOMYCOSIS
     Route: 065
  13. AZATHIOPRINE [Suspect]
     Indication: BLASTOMYCOSIS
     Route: 065
  14. ITRACONAZOLE [Suspect]
     Indication: BLASTOMYCOSIS
     Dosage: FOR A MEDIAN TOTAL DURATION OF 18 MONTHS
     Route: 065
  15. SIROLIMUS [Suspect]
     Indication: HISTOPLASMOSIS
     Route: 065
  16. AZATHIOPRINE [Suspect]
     Indication: HISTOPLASMOSIS
     Route: 065

REACTIONS (1)
  - FUNGAL INFECTION [None]
